FAERS Safety Report 6746332-3 (Version None)
Quarter: 2010Q2

REPORT INFORMATION
  Report Type: 
  Country: None (occurrence: None)
  Receive Date: 20100528
  Receipt Date: 20100520
  Transmission Date: 20101027
  Serious: Yes (Hospitalization)
  Sender: FDA-Public Use
  Company Number: IT-PFIZER INC-2010012168

PATIENT
  Age: 49 Year
  Sex: Female

DRUGS (1)
  1. ZITHROMAX [Suspect]
     Indication: PHARYNGITIS
     Dosage: 1000 MG, DAILY
     Route: 048
     Dates: start: 20091123, end: 20091123

REACTIONS (2)
  - PARAESTHESIA ORAL [None]
  - THROAT TIGHTNESS [None]
